FAERS Safety Report 9784658 (Version 1)
Quarter: 2013Q4

REPORT INFORMATION
  Report Type: Spontaneous
  Country: TR (occurrence: TR)
  Receive Date: 20131226
  Receipt Date: 20131226
  Transmission Date: 20140711
  Serious: Yes (Hospitalization, Other)
  Sender: FDA-Public Use
  Company Number: TR-WATSON-2013-23148

PATIENT
  Age: 64 Year
  Sex: Female

DRUGS (1)
  1. METRONIDAZOLE (UNKNOWN) [Suspect]
     Indication: COLITIS ULCERATIVE
     Dosage: 1500 MG, DAILY
     Route: 065

REACTIONS (5)
  - Central nervous system necrosis [Unknown]
  - Cytotoxic oedema [Unknown]
  - Ataxia [Unknown]
  - Dysarthria [Unknown]
  - Toxicity to various agents [Unknown]
